FAERS Safety Report 7493693-6 (Version None)
Quarter: 2011Q2

REPORT INFORMATION
  Report Type: 
  Country: None (occurrence: None)
  Receive Date: 20110513
  Receipt Date: 20110428
  Transmission Date: 20111010
  Serious: Yes (Other)
  Sender: FDA-Public Use
  Company Number: 031454

PATIENT
  Sex: Female

DRUGS (2)
  1. XYZAL [Suspect]
     Indication: RHINITIS ALLERGIC
     Dosage: (2.5 MG BID ORAL)
     Route: 048
     Dates: start: 20110331, end: 20110413
  2. FLUNASE /00972202/ [Concomitant]

REACTIONS (1)
  - MENARCHE [None]
